FAERS Safety Report 7763604-4 (Version None)
Quarter: 2011Q3

REPORT INFORMATION
  Report Type: 
  Country: None (occurrence: None)
  Receive Date: 20110921
  Receipt Date: 20110225
  Transmission Date: 20111222
  Serious: Yes (Hospitalization)
  Sender: FDA-Public Use
  Company Number: PHHY2011GB15927

PATIENT
  Age: 36 Year
  Sex: Female

DRUGS (7)
  1. OXCARBAZEPINE [Suspect]
     Indication: CONVULSION
     Dosage: 1350 MG, UNK
  2. TOPIRAMATE [Interacting]
     Indication: CONVULSION
     Dosage: 250 MG, UNK
  3. LACOSAMIDE [Interacting]
     Dosage: 100 MG, QD
  4. LACOSAMIDE [Interacting]
     Dosage: 200 MG, UNK
  5. OXCARBAZEPINE [Interacting]
     Dosage: 300 MG, QD
  6. PHENYTOIN [Interacting]
     Indication: CONVULSION
     Dosage: 150 MG, UNK
  7. OXCARBAZEPINE [Interacting]
     Dosage: 1200 MG, QD

REACTIONS (6)
  - NEUROTOXICITY [None]
  - CONVULSION [None]
  - DIPLOPIA [None]
  - DRUG INTERACTION [None]
  - BALANCE DISORDER [None]
  - ANTICONVULSANT DRUG LEVEL DECREASED [None]
